FAERS Safety Report 5642665-2 (Version None)
Quarter: 2008Q1

REPORT INFORMATION
  Report Type: 
  Country: None (occurrence: None)
  Receive Date: 20080226
  Receipt Date: 20080220
  Transmission Date: 20080703
  Serious: Yes (Hospitalization)
  Sender: FDA-Public Use
  Company Number: RGD: 57194/128

PATIENT
  Age: 42 Year
  Sex: Male

DRUGS (2)
  1. TERBINAFINE TERBINAFINE TABLET [Suspect]
     Indication: ONYCHOMYCOSIS
  2. SILICONES (ORAL) [Concomitant]

REACTIONS (2)
  - MYOSITIS [None]
  - RHABDOMYOLYSIS [None]
